FAERS Safety Report 24994377 (Version 1)
Quarter: 2025Q1

REPORT INFORMATION
  Report Type: Spontaneous
  Country: US (occurrence: None)
  Receive Date: 20250220
  Receipt Date: 20250220
  Transmission Date: 20250409
  Serious: No
  Sender: FDA-CTU
  Company Number: None

PATIENT
  Age: 78 Year

DRUGS (1)
  1. BENAZEPRIL HYDROCHLORIDE [Suspect]
     Active Substance: BENAZEPRIL HYDROCHLORIDE
     Dates: end: 20241006

REACTIONS (4)
  - Swollen tongue [None]
  - Angioedema [None]
  - Transcription medication error [None]
  - Wrong product administered [None]

NARRATIVE: CASE EVENT DATE: 20241006
